FAERS Safety Report 14056037 (Version 7)
Quarter: 2019Q3

REPORT INFORMATION
  Report Type: Report from Study
  Country: CA (occurrence: CA)
  Receive Date: 20171006
  Receipt Date: 20190916
  Transmission Date: 20191004
  Serious: Yes (Other)
  Sender: FDA-Public Use
  Company Number: CA-BRISTOL-MYERS SQUIBB COMPANY-BMS-2017-076517

PATIENT
  Age: 70 Year
  Sex: Male

DRUGS (1)
  1. ABATACEPT [Suspect]
     Active Substance: ABATACEPT
     Indication: RHEUMATOID ARTHRITIS
     Dosage: 750 MILLIGRAM, Q4WK
     Route: 042
     Dates: start: 20090508

REACTIONS (10)
  - Tooth injury [Recovering/Resolving]
  - Trigger finger [Not Recovered/Not Resolved]
  - Ocular hyperaemia [Unknown]
  - Cough [Unknown]
  - Skin infection [Recovered/Resolved]
  - Blood pressure increased [Unknown]
  - Renal impairment [Unknown]
  - Tooth disorder [Unknown]
  - Muscular weakness [Unknown]
  - Scar [Unknown]

NARRATIVE: CASE EVENT DATE: 201708
